FAERS Safety Report 22154962 (Version 1)
Quarter: 2023Q1

REPORT INFORMATION
  Report Type: Spontaneous
  Country: US (occurrence: None)
  Receive Date: 20230329
  Receipt Date: 20230329
  Transmission Date: 20230418
  Serious: Yes (Other)
  Sender: FDA-Public Use
  Company Number: None

PATIENT
  Age: 70 Year
  Sex: Female

DRUGS (17)
  1. AMBRISENTAN [Suspect]
     Active Substance: AMBRISENTAN
     Indication: Pulmonary arterial hypertension
     Dosage: FREQUENCY : DAILY;?
     Route: 048
     Dates: start: 20180402
  2. AMIODARONE [Concomitant]
     Active Substance: AMIODARONE
  3. FUROSEMIDE [Concomitant]
     Active Substance: FUROSEMIDE
  4. POTASSIUM CHLORIDE [Concomitant]
     Active Substance: POTASSIUM CHLORIDE
  5. BUPROPION [Concomitant]
     Active Substance: BUPROPION
  6. LEVOTHYROXINE [Concomitant]
     Active Substance: LEVOTHYROXINE
  7. PANTOPRAZOLE [Concomitant]
     Active Substance: PANTOPRAZOLE
  8. WARFARIN [Concomitant]
     Active Substance: WARFARIN
  9. LAMOTRIGINE [Concomitant]
     Active Substance: LAMOTRIGINE
  10. METOPROLOL [Concomitant]
     Active Substance: METOPROLOL
  11. ATORVASTATIN [Concomitant]
     Active Substance: ATORVASTATIN
  12. FLONASE [Concomitant]
     Active Substance: FLUTICASONE PROPIONATE
  13. Clobetasol top cream [Concomitant]
  14. CLEARLAX [Concomitant]
     Active Substance: POLYETHYLENE GLYCOL 3350
  15. CULTURELLE [Concomitant]
     Active Substance: LACTOBACILLUS RHAMNOSUS
  16. Derma-smoothe top oil [Concomitant]
  17. CALCIUM\VITAMIN D [Concomitant]
     Active Substance: CALCIUM\VITAMIN D

REACTIONS (3)
  - Fall [None]
  - Skin abrasion [None]
  - Skin haemorrhage [None]

NARRATIVE: CASE EVENT DATE: 20230224
